FAERS Safety Report 4744047-4 (Version None)
Quarter: 2005Q3

REPORT INFORMATION
  Report Type: 
  Country: None (occurrence: None)
  Receive Date: 20050812
  Receipt Date: 20050803
  Transmission Date: 20060218
  Serious: Yes (Hospitalization)
  Sender: FDA-Public Use
  Company Number: 2005SE04505

PATIENT
  Age: 33 Year
  Sex: Male

DRUGS (1)
  1. LUCEN [Suspect]
     Indication: ABDOMINAL PAIN UPPER
     Route: 048
     Dates: start: 20050721, end: 20050721

REACTIONS (2)
  - CONFUSIONAL STATE [None]
  - PSYCHOMOTOR HYPERACTIVITY [None]
